FAERS Safety Report 18418663 (Version 1)
Quarter: 2020Q4

REPORT INFORMATION
  Report Type: Spontaneous
  Country: IS (occurrence: IS)
  Receive Date: 20201023
  Receipt Date: 20201023
  Transmission Date: 20210114
  Serious: Yes (Other)
  Sender: FDA-Public Use
  Company Number: IS-TEVA-2020-IS-1840602

PATIENT
  Age: 86 Year
  Sex: Male

DRUGS (1)
  1. EZETIMIBE RATIOPHARM 10 MG TOFLUR [Suspect]
     Active Substance: EZETIMIBE
     Route: 065

REACTIONS (5)
  - Fatigue [Unknown]
  - Asthenia [Unknown]
  - Syncope [Unknown]
  - Hypoaesthesia [Unknown]
  - Dizziness [Unknown]
